FAERS Safety Report 5813594-6 (Version None)
Quarter: 2008Q3

REPORT INFORMATION
  Report Type: 
  Country: None (occurrence: None)
  Receive Date: 20080714
  Receipt Date: 20080626
  Transmission Date: 20090109
  Serious: No
  Sender: FDA-Public Use
  Company Number: US 2008 0002

PATIENT
  Age: 53 Year
  Sex: Female
  Weight: 76.6579 kg

DRUGS (3)
  1. OXILAN-350 [Suspect]
     Indication: CATHETERISATION CARDIAC
     Dates: start: 20080620
  2. DILAUDID [Concomitant]
  3. ERSED (MIDAZOLAM) [Concomitant]

REACTIONS (6)
  - BLOOD PRESSURE SYSTOLIC INCREASED [None]
  - BRADYCARDIA [None]
  - CHEST PAIN [None]
  - ELECTROCARDIOGRAM ST SEGMENT DEPRESSION [None]
  - ELECTROCARDIOGRAM ST SEGMENT ELEVATION [None]
  - POST PROCEDURAL COMPLICATION [None]
